FAERS Safety Report 5120806-3 (Version None)
Quarter: 2006Q4

REPORT INFORMATION
  Report Type: 
  Country: None (occurrence: None)
  Receive Date: 20061003
  Receipt Date: 20061003
  Transmission Date: 20070319
  Serious: Yes (Hospitalization)
  Sender: FDA-Public Use
  Company Number: None

PATIENT
  Age: 61 Year
  Sex: Male

DRUGS (2)
  1. VANCOMYCIN [Suspect]
     Indication: SEPSIS
     Dosage: 1 GM IV DAILY
     Dates: start: 20060809, end: 20060810
  2. PIPERACILLIN AND TAZOBACTAM [Suspect]
     Indication: SEPSIS
     Dosage: 2.25 GM IV EVERY 6 HOURS
     Route: 042
     Dates: start: 20060809, end: 20060810

REACTIONS (4)
  - CONDITION AGGRAVATED [None]
  - HERPES SIMPLEX [None]
  - RASH MACULAR [None]
  - RASH VESICULAR [None]
